FAERS Safety Report 11082218 (Version 3)
Quarter: 2015Q4

REPORT INFORMATION
  Report Type: Report from Study
  Country: US (occurrence: US)
  Receive Date: 20150501
  Receipt Date: 20151109
  Transmission Date: 20160304
  Serious: Yes (Other)
  Sender: FDA-Public Use
  Company Number: US-SA-2014SA096558

PATIENT
  Age: 50 Year
  Sex: Female

DRUGS (4)
  1. AUBAGIO [Suspect]
     Active Substance: TERIFLUNOMIDE
     Indication: MULTIPLE SCLEROSIS
     Route: 048
     Dates: start: 20140713
  2. AUBAGIO [Suspect]
     Active Substance: TERIFLUNOMIDE
     Indication: MULTIPLE SCLEROSIS
     Route: 048
     Dates: start: 20140713
  3. VITAMIN K [Concomitant]
     Active Substance: PHYTONADIONE
  4. NAPROXEN. [Concomitant]
     Active Substance: NAPROXEN
     Indication: ARTHRITIS

REACTIONS (26)
  - Fatigue [Unknown]
  - Dysphagia [Unknown]
  - Pain [Unknown]
  - Balance disorder [Unknown]
  - Hypokinesia [Not Recovered/Not Resolved]
  - Nasal congestion [Unknown]
  - Hypoaesthesia [Not Recovered/Not Resolved]
  - Alopecia [Not Recovered/Not Resolved]
  - Sensory disturbance [Not Recovered/Not Resolved]
  - Nasopharyngitis [Unknown]
  - Burning sensation [Not Recovered/Not Resolved]
  - Paraesthesia [Not Recovered/Not Resolved]
  - Dyspnoea [Unknown]
  - Gait disturbance [Recovered/Resolved]
  - Anxiety [Unknown]
  - Abdominal pain upper [Unknown]
  - Hypoaesthesia [Not Recovered/Not Resolved]
  - Limb discomfort [Unknown]
  - Back pain [Not Recovered/Not Resolved]
  - Pain in extremity [Unknown]
  - Oropharyngeal pain [Unknown]
  - Gastric ulcer [Unknown]
  - Sleep disorder [Not Recovered/Not Resolved]
  - Chest discomfort [Unknown]
  - Memory impairment [Unknown]
  - Gastrointestinal pain [Unknown]

NARRATIVE: CASE EVENT DATE: 201407
